FAERS Safety Report 19146235 (Version 2)
Quarter: 2021Q3

REPORT INFORMATION
  Report Type: Spontaneous
  Country: US (occurrence: US)
  Receive Date: 20210416
  Receipt Date: 20210816
  Transmission Date: 20211014
  Serious: Yes (Other)
  Sender: FDA-Public Use
  Company Number: US-TAKEDA-2021TUS022811

PATIENT
  Age: 55 Year
  Sex: Female
  Weight: 71 kg

DRUGS (10)
  1. GAMMAGARD LIQUID [Suspect]
     Active Substance: HUMAN IMMUNOGLOBULIN G
     Indication: IMMUNODEFICIENCY COMMON VARIABLE
     Dosage: UNK
     Route: 042
     Dates: start: 2011
  2. GAMMAGARD LIQUID [Suspect]
     Active Substance: HUMAN IMMUNOGLOBULIN G
     Indication: HYPOGAMMAGLOBULINAEMIA
     Dosage: 10 GRAM, 1/WEEK
     Route: 058
     Dates: start: 2014
  3. HYDROCHLOROTHIAZIDE. [Concomitant]
     Active Substance: HYDROCHLOROTHIAZIDE
     Indication: BLOOD PRESSURE MEASUREMENT
     Dosage: 25 MILLIGRAM
     Route: 065
  4. ALPRAZOLAM. [Concomitant]
     Active Substance: ALPRAZOLAM
     Dosage: 0.25 U, PRN
     Route: 065
  5. VITAMIN B12 [VITAMIN B12 NOS] [Concomitant]
     Active Substance: CYANOCOBALAMIN
     Dosage: 30 MILLIGRAM, QD
     Route: 042
     Dates: start: 2011
  6. DEXILANT [Suspect]
     Active Substance: DEXLANSOPRAZOLE
     Indication: HIATUS HERNIA
  7. VITAMIN B12 [VITAMIN B12 NOS] [Concomitant]
     Active Substance: CYANOCOBALAMIN
     Dosage: UNK, QD
     Route: 060
  8. DEXILANT [Suspect]
     Active Substance: DEXLANSOPRAZOLE
     Indication: GASTROOESOPHAGEAL REFLUX DISEASE
     Dosage: 30 MILLIGRAM, QD
     Route: 065
     Dates: start: 20210401
  9. HYDROCHLOROTHIAZIDE. [Concomitant]
     Active Substance: HYDROCHLOROTHIAZIDE
     Indication: WEIGHT
  10. BENADRYL [ACRIVASTINE] [Concomitant]
     Active Substance: ACRIVASTINE
     Indication: PRODUCT USED FOR UNKNOWN INDICATION
     Dosage: UNK, QD

REACTIONS (2)
  - Lupus-like syndrome [Unknown]
  - Antinuclear antibody increased [Unknown]

NARRATIVE: CASE EVENT DATE: 20210401
